FAERS Safety Report 15343481 (Version 1)
Quarter: 2018Q3

REPORT INFORMATION
  Report Type: Spontaneous
  Country: US (occurrence: US)
  Receive Date: 20180903
  Receipt Date: 20180903
  Transmission Date: 20181010
  Serious: Yes (Hospitalization)
  Sender: FDA-Public Use
  Company Number: US-PFIZER INC-2018349089

PATIENT
  Age: 17 Year
  Sex: Female

DRUGS (1)
  1. SERTRALINE HCL [Suspect]
     Active Substance: SERTRALINE HYDROCHLORIDE
     Indication: DEPRESSION
     Dosage: UNK

REACTIONS (8)
  - Mania [Unknown]
  - Dyspepsia [Unknown]
  - Drug administered to patient of inappropriate age [Unknown]
  - Asthenia [Unknown]
  - Feeling abnormal [Unknown]
  - Intentional self-injury [Unknown]
  - Abdominal discomfort [Unknown]
  - Malaise [Unknown]
